FAERS Safety Report 6089168-1 (Version None)
Quarter: 2009Q1

REPORT INFORMATION
  Report Type: 
  Country: None (occurrence: None)
  Receive Date: 20090224
  Receipt Date: 20090212
  Transmission Date: 20090719
  Serious: Yes (Death, Hospitalization)
  Sender: FDA-Public Use
  Company Number: PL-PFIZER INC-2006118878

PATIENT

DRUGS (7)
  1. SUNITINIB MALATE [Suspect]
     Dosage: 37.5 MG, 1X/DAY
     Route: 048
     Dates: start: 20060428, end: 20060929
  2. EFFOX LONG [Concomitant]
     Route: 048
     Dates: start: 20060529, end: 20060929
  3. MOLSIDOMINA [Concomitant]
     Route: 048
     Dates: start: 20060529, end: 20060929
  4. TRIMETAZIDINE [Concomitant]
     Route: 048
     Dates: start: 20060918, end: 20060929
  5. SIOFOR [Concomitant]
     Route: 048
  6. DIABREZIDE [Concomitant]
     Route: 048
  7. VITAMIN B COMPLEX CAP [Concomitant]
     Route: 048

REACTIONS (1)
  - SHOCK [None]
